FAERS Safety Report 12961092 (Version 2)
Quarter: 2016Q4

REPORT INFORMATION
  Report Type: Spontaneous
  Country: IT (occurrence: IT)
  Receive Date: 20161121
  Receipt Date: 20161128
  Transmission Date: 20170207
  Serious: Yes (Other)
  Sender: FDA-Public Use
  Company Number: IT-PFIZER INC-2016532194

PATIENT
  Age: 62 Year
  Sex: Female
  Weight: 80 kg

DRUGS (4)
  1. OXALIPLATIN. [Suspect]
     Active Substance: OXALIPLATIN
     Indication: RECTAL CANCER
     Dosage: 153 MG, CYCLIC
     Route: 040
     Dates: start: 20160726
  2. AVASTIN [Concomitant]
     Active Substance: BEVACIZUMAB
     Indication: RECTAL CANCER
     Dosage: 400 MG, UNK
     Route: 042
     Dates: start: 20160726
  3. FLUOROURACIL. [Suspect]
     Active Substance: FLUOROURACIL
     Indication: RECTAL CANCER
     Dosage: 4320 MG, CYCLIC
     Route: 040
     Dates: start: 20160726
  4. IRINOTECAN HCL [Suspect]
     Active Substance: IRINOTECAN HYDROCHLORIDE
     Indication: RECTAL CANCER
     Dosage: 222 MG, CYCLIC
     Route: 042
     Dates: start: 20160726

REACTIONS (4)
  - Diarrhoea [Recovered/Resolved]
  - Dysaesthesia [Recovered/Resolved]
  - Nausea [Recovered/Resolved]
  - Paraesthesia [Recovered/Resolved]

NARRATIVE: CASE EVENT DATE: 20161021
